FAERS Safety Report 7091695-5 (Version None)
Quarter: 2010Q4

REPORT INFORMATION
  Report Type: 
  Country: None (occurrence: None)
  Receive Date: 20101109
  Receipt Date: 20090817
  Transmission Date: 20110411
  Serious: No
  Sender: FDA-Public Use
  Company Number: US-KINGPHARMUSA00001-K200900995

PATIENT
  Sex: Female

DRUGS (4)
  1. FLECTOR [Suspect]
     Indication: RADICULAR PAIN
     Dosage: 1 PATCH, BID
     Route: 061
     Dates: start: 20090815, end: 20090817
  2. FLECTOR [Suspect]
     Indication: NEURALGIA
  3. FLECTOR [Suspect]
     Indication: ARTHRALGIA
  4. LYRICA [Concomitant]
     Indication: NEURALGIA
     Dosage: UNK

REACTIONS (1)
  - DRUG INEFFECTIVE [None]
